FAERS Safety Report 13701915 (Version 2)
Quarter: 2018Q1

REPORT INFORMATION
  Report Type: Spontaneous
  Country: BG (occurrence: BG)
  Receive Date: 20170629
  Receipt Date: 20180222
  Transmission Date: 20180508
  Serious: Yes (Life-Threatening, Hospitalization, Other)
  Sender: FDA-Public Use
  Company Number: BG-GLAXOSMITHKLINE-BG2017GSK096387

PATIENT
  Age: 25 Year
  Sex: Male

DRUGS (7)
  1. CEFUROXIME. [Suspect]
     Active Substance: CEFUROXIME
     Indication: COUGH
     Dosage: UNK
     Route: 065
  2. CEFOPERAZONE [Suspect]
     Active Substance: CEFOPERAZONE
     Indication: CHEST PAIN
     Dosage: UNK
     Route: 065
  3. CEFOPERAZONE [Suspect]
     Active Substance: CEFOPERAZONE
     Indication: CHILLS
     Dosage: UNK
     Route: 042
     Dates: start: 20141201, end: 20141201
  4. CEFUROXIME. [Suspect]
     Active Substance: CEFUROXIME
     Indication: CHILLS
  5. CEFOPERAZONE [Suspect]
     Active Substance: CEFOPERAZONE
     Indication: COUGH
  6. CEFUROXIME. [Suspect]
     Active Substance: CEFUROXIME
     Indication: PYREXIA
     Dosage: UNK
     Route: 048
     Dates: start: 20141201, end: 20141201
  7. CEFUROXIME. [Suspect]
     Active Substance: CEFUROXIME
     Indication: CHEST PAIN

REACTIONS (12)
  - Stevens-Johnson syndrome [Recovering/Resolving]
  - Necrosis [Recovering/Resolving]
  - Blister [Recovering/Resolving]
  - Conjunctivitis [Recovering/Resolving]
  - Condition aggravated [Recovering/Resolving]
  - Oral mucosa erosion [Recovering/Resolving]
  - Tachycardia [Recovering/Resolving]
  - Toxic epidermal necrolysis [Recovered/Resolved]
  - Pneumonia [Recovering/Resolving]
  - Polyuria [Recovering/Resolving]
  - Pain [Recovering/Resolving]
  - Hepatomegaly [Recovering/Resolving]

NARRATIVE: CASE EVENT DATE: 201412
